FAERS Safety Report 4894025-X (Version None)
Quarter: 2005Q4

REPORT INFORMATION
  Report Type: 
  Country: None (occurrence: None)
  Receive Date: 20051223
  Receipt Date: 20051024
  Transmission Date: 20060501
  Serious: No
  Sender: FDA-Public Use
  Company Number: 2005PV003539

PATIENT
  Age: 71 Year
  Sex: Female
  Weight: 108.4097 kg

DRUGS (10)
  1. SYMLIN [Suspect]
     Indication: DIABETES MELLITUS NON-INSULIN-DEPENDENT
     Dosage: 30 MCG; TID; SC
     Route: 058
     Dates: start: 20051016
  2. LANTUS [Concomitant]
  3. HUMALOG [Concomitant]
  4. SYNTHROID [Concomitant]
  5. LASIX [Concomitant]
  6. NORVASC [Concomitant]
  7. AMITRIPTYLINE HCL [Concomitant]
  8. PROTONIX [Concomitant]
  9. ASPIRIN [Concomitant]
  10. NITROGLYCERIN [Concomitant]

REACTIONS (2)
  - FATIGUE [None]
  - WEIGHT DECREASED [None]
